FAERS Safety Report 18639012 (Version 1)
Quarter: 2020Q4

REPORT INFORMATION
  Report Type: Other
  Country: US (occurrence: US)
  Receive Date: 20201218
  Receipt Date: 20201218
  Transmission Date: 20210114
  Serious: Yes (Life-Threatening, Hospitalization, Other)
  Sender: FDA-Public Use
  Company Number: US-C B FLEET CO INC-202012-US-004371

PATIENT
  Age: 66 Year
  Sex: Female

DRUGS (1)
  1. MINERAL OIL. [Suspect]
     Active Substance: MINERAL OIL
     Indication: CONSTIPATION
     Dosage: REPEATED USE OF MINERAL OIL FOR CHRONIC CONSTIPATION
     Route: 048

REACTIONS (5)
  - Pyrexia [Recovered/Resolved]
  - Dyspnoea [Recovered/Resolved]
  - Oxygen saturation decreased [Recovered/Resolved]
  - Pneumonia lipoid [Recovered/Resolved]
  - Intentional product misuse [None]
